FAERS Safety Report 13023640 (Version 1)
Quarter: 2016Q4

REPORT INFORMATION
  Report Type: Spontaneous
  Country: US (occurrence: US)
  Receive Date: 20161213
  Receipt Date: 20161213
  Transmission Date: 20170207
  Serious: No
  Sender: FDA-Public Use
  Company Number: US-009507513-1611USA008864

PATIENT
  Age: 25 Year
  Sex: Female
  Weight: 104.31 kg

DRUGS (1)
  1. IMPLANON [Suspect]
     Active Substance: ETONOGESTREL
     Indication: CONTRACEPTION
     Dosage: 1 IMPLANT, EVERY THREE YEARS
     Route: 059
     Dates: start: 201007

REACTIONS (10)
  - Implant site pain [Unknown]
  - Incorrect drug administration duration [Unknown]
  - Menorrhagia [Unknown]
  - Abdominal pain upper [Unknown]
  - Back pain [Unknown]
  - Oropharyngeal pain [Unknown]
  - Chest pain [Unknown]
  - Pain in extremity [Unknown]
  - Hypoaesthesia [Unknown]
  - Weight increased [Unknown]

NARRATIVE: CASE EVENT DATE: 201007
